FAERS Safety Report 12879508 (Version 1)
Quarter: 2016Q4

REPORT INFORMATION
  Report Type: Spontaneous
  Country: DE (occurrence: DE)
  Receive Date: 20161025
  Receipt Date: 20161025
  Transmission Date: 20170207
  Serious: Yes (Hospitalization, Other)
  Sender: FDA-Public Use
  Company Number: DE-ALEMBIC PHARMACUETICALS LIMITED-2016SCAL000844

PATIENT

DRUGS (3)
  1. PERAZINE DIMALONATE [Concomitant]
     Active Substance: PERAZINE DIMALONATE
     Indication: BIPOLAR DISORDER
     Dosage: 4 DF, UNK
  2. LITHIUM CARBONATE. [Suspect]
     Active Substance: LITHIUM CARBONATE
     Indication: BIPOLAR DISORDER
     Dosage: 29 TABLETS OF LITHIUM
  3. ZOLPIDEMTARTRAAT [Concomitant]
     Active Substance: ZOLPIDEM TARTRATE
     Indication: BIPOLAR DISORDER
     Dosage: 10 DF, UNK

REACTIONS (6)
  - Polyuria [Recovered/Resolved]
  - Coma scale abnormal [Recovered/Resolved]
  - Suicide attempt [Unknown]
  - Toxicity to various agents [Recovered/Resolved]
  - Somnolence [Recovered/Resolved]
  - Overdose [Unknown]
